FAERS Safety Report 24993659 (Version 2)
Quarter: 2025Q2

REPORT INFORMATION
  Report Type: Report from Study
  Country: US (occurrence: US)
  Receive Date: 20250221
  Receipt Date: 20250409
  Transmission Date: 20250717
  Serious: No
  Sender: SUNOVION
  Company Number: US-SUMITOMO PHARMA SWITZERLAND GMBH-2025SPA001125

PATIENT

DRUGS (32)
  1. ORGOVYX [Suspect]
     Active Substance: RELUGOLIX
     Indication: Prostate cancer
     Dosage: 360 MG, SINGLE
     Route: 048
     Dates: start: 202501, end: 202501
  2. ORGOVYX [Suspect]
     Active Substance: RELUGOLIX
     Dosage: 120 MG, QD
     Route: 048
     Dates: start: 202501
  3. ABILIFY [Concomitant]
     Active Substance: ARIPIPRAZOLE
     Route: 065
  4. ACEBUTOLOL [Concomitant]
     Active Substance: ACEBUTOLOL
     Route: 065
  5. CETIRIZINE [Concomitant]
     Active Substance: CETIRIZINE HYDROCHLORIDE
     Route: 065
  6. ASPIRIN [Concomitant]
     Active Substance: ASPIRIN
     Route: 065
  7. BENADRYL [Concomitant]
     Active Substance: DIPHENHYDRAMINE HYDROCHLORIDE
     Route: 065
  8. CLOTRIMAZOLE [Concomitant]
     Active Substance: CLOTRIMAZOLE
     Route: 065
  9. CYCLOBENZAPRINE [Concomitant]
     Active Substance: CYCLOBENZAPRINE
     Route: 065
  10. DILTIAZEM [Concomitant]
     Active Substance: DILTIAZEM
  11. DONEPEZIL [Concomitant]
     Active Substance: DONEPEZIL
     Route: 065
  12. ELIQUIS [Concomitant]
     Active Substance: APIXABAN
     Route: 065
  13. FLOMAX [Concomitant]
     Active Substance: TAMSULOSIN HYDROCHLORIDE
     Route: 065
  14. FLONASE [Concomitant]
     Active Substance: FLUTICASONE PROPIONATE
     Route: 065
  15. GLIMEPIRIDE [Concomitant]
     Active Substance: GLIMEPIRIDE
     Route: 065
  16. ISOSORBIDE MONONITRATE [Concomitant]
     Active Substance: ISOSORBIDE MONONITRATE
     Route: 065
  17. JARDIANCE [Concomitant]
     Active Substance: EMPAGLIFLOZIN
     Route: 065
  18. KERENDIA [Concomitant]
     Active Substance: FINERENONE
     Route: 065
  19. LATANOPROST [Concomitant]
     Active Substance: LATANOPROST
  20. LINZESS [Concomitant]
     Active Substance: LINACLOTIDE
  21. LIPITOR [Concomitant]
     Active Substance: ATORVASTATIN CALCIUM
     Route: 065
  22. METOPROLOL TARTRATE [Concomitant]
     Active Substance: METOPROLOL TARTRATE
     Route: 065
  23. VITAMINS [Concomitant]
     Active Substance: VITAMINS
     Route: 065
  24. OZEMPIC [Concomitant]
     Active Substance: SEMAGLUTIDE
     Route: 065
  25. PLAVIX [Concomitant]
     Active Substance: CLOPIDOGREL BISULFATE
  26. QUETIAPINE FUMARATE [Concomitant]
     Active Substance: QUETIAPINE FUMARATE
     Route: 065
  27. RISPERIDONE [Concomitant]
     Active Substance: RISPERIDONE
     Route: 065
  28. SENNA PLUS [Concomitant]
     Active Substance: DOCUSATE SODIUM\SENNOSIDES\SENNOSIDES A AND B
     Route: 065
  29. TERAZOSIN [Concomitant]
     Active Substance: TERAZOSIN HYDROCHLORIDE
     Route: 065
  30. TRULICITY [Concomitant]
     Active Substance: DULAGLUTIDE
     Route: 065
  31. TRAMADOL [Concomitant]
     Active Substance: TRAMADOL
     Route: 065
  32. ZOLOFT [Concomitant]
     Active Substance: SERTRALINE HYDROCHLORIDE
     Route: 065

REACTIONS (4)
  - Blood glucose fluctuation [Unknown]
  - Hot flush [Unknown]
  - Hyperhidrosis [Unknown]
  - Depression [Unknown]

NARRATIVE: CASE EVENT DATE: 20250101
